FAERS Safety Report 6083685-6 (Version None)
Quarter: 2009Q1

REPORT INFORMATION
  Report Type: 
  Country: None (occurrence: None)
  Receive Date: 20090206
  Receipt Date: 20080618
  Transmission Date: 20090719
  Serious: Yes (Disabling)
  Sender: FDA-Public Use
  Company Number: URSO-2008-065

PATIENT
  Age: 42 Year
  Sex: Male
  Weight: 158.759 kg

DRUGS (7)
  1. URSO FORTE [Suspect]
     Indication: BILIARY CIRRHOSIS PRIMARY
     Dosage: 2250MG; QD; ORAL
     Route: 048
     Dates: start: 20070401
  2. ASPIRIN [Concomitant]
  3. LISINOPIRL (LISINOPRIL) [Concomitant]
  4. HYDROCHLOROTHIAZIDE [Concomitant]
  5. NEXIUM (ESOMEPRAZOLE MAGNESIUM) 40 MG BID [Concomitant]
  6. SERTRALINE (SERTRALINE) 100MG HS [Concomitant]
  7. HYOSCINE (HYOSCINE BUTYLBROMIDE) BID [Concomitant]

REACTIONS (1)
  - ABDOMINAL PAIN LOWER [None]
